FAERS Safety Report 5405020-6 (Version None)
Quarter: 2007Q3

REPORT INFORMATION
  Report Type: 
  Country: None (occurrence: None)
  Receive Date: 20070803
  Receipt Date: 20070724
  Transmission Date: 20080115
  Serious: Yes (Hospitalization)
  Sender: FDA-Public Use
  Company Number: NL-JNJFOC-20070701908

PATIENT
  Sex: Female

DRUGS (11)
  1. INFLIXIMAB [Suspect]
     Route: 042
  2. INFLIXIMAB [Suspect]
     Route: 042
  3. INFLIXIMAB [Suspect]
     Route: 042
  4. INFLIXIMAB [Suspect]
     Route: 042
  5. INFLIXIMAB [Suspect]
     Route: 042
  6. INFLIXIMAB [Suspect]
     Indication: ANKYLOSING SPONDYLITIS
     Route: 042
  7. CELEBREX [Concomitant]
     Dosage: 1X
     Route: 048
  8. ACETAMINOPHEN [Concomitant]
     Route: 048
  9. OMEPRAZOLE [Concomitant]
     Dosage: 1X
     Route: 048
  10. CALCICHEW [Concomitant]
     Dosage: 500/600 1X
     Route: 048
  11. FOSAMAX [Concomitant]
     Route: 048

REACTIONS (5)
  - ABDOMINAL PAIN [None]
  - DIARRHOEA [None]
  - DIVERTICULITIS [None]
  - INTESTINAL RESECTION [None]
  - WOUND INFECTION [None]
